FAERS Safety Report 5641472-4 (Version None)
Quarter: 2008Q1

REPORT INFORMATION
  Report Type: 
  Country: None (occurrence: None)
  Receive Date: 20080227
  Receipt Date: 20070913
  Transmission Date: 20080703
  Serious: No
  Sender: FDA-Public Use
  Company Number: A0681323A

PATIENT
  Age: 52 Year
  Sex: Male

DRUGS (1)
  1. NICORETTE (MINT) [Suspect]
     Dates: start: 20070906, end: 20070912

REACTIONS (2)
  - APHTHOUS STOMATITIS [None]
  - ORAL PAIN [None]
